FAERS Safety Report 6897600-6 (Version None)
Quarter: 2010Q3

REPORT INFORMATION
  Report Type: 
  Country: None (occurrence: None)
  Receive Date: 20100802
  Receipt Date: 20070627
  Transmission Date: 20110219
  Serious: No
  Sender: FDA-Public Use
  Company Number: US-PFIZER INC-2007033435

PATIENT
  Sex: Female
  Weight: 30.4 kg

DRUGS (6)
  1. LYRICA [Suspect]
     Indication: PAIN IN EXTREMITY
     Dates: start: 20060601, end: 20060601
  2. CHOLESTEROL- AND TRIGLYCERIDE REDUCERS [Concomitant]
     Indication: BLOOD CHOLESTEROL ABNORMAL
  3. DRUG, UNSPECIFIED [Concomitant]
     Indication: THYROID DISORDER
  4. ATENOLOL [Concomitant]
     Indication: HEART RATE INCREASED
  5. AMBIEN [Concomitant]
  6. AMITRIPTYLINE HYDROCHLORIDE [Concomitant]

REACTIONS (3)
  - ERYTHEMA [None]
  - PARAESTHESIA [None]
  - SKIN ODOUR ABNORMAL [None]
